FAERS Safety Report 5485348-4 (Version None)
Quarter: 2007Q4

REPORT INFORMATION
  Report Type: 
  Country: None (occurrence: None)
  Receive Date: 20071015
  Receipt Date: 20071008
  Transmission Date: 20080405
  Serious: Yes (Death)
  Sender: FDA-Public Use
  Company Number: US-BAYER-200713130BCC

PATIENT
  Age: 77 Year
  Sex: Male

DRUGS (1)
  1. ASPIRIN [Suspect]
     Indication: ARTHRALGIA
     Route: 048
     Dates: start: 19930101

REACTIONS (1)
  - PNEUMONIA ASPIRATION [None]
